FAERS Safety Report 5268705-0 (Version None)
Quarter: 2007Q1

REPORT INFORMATION
  Report Type: 
  Country: None (occurrence: None)
  Receive Date: 20070319
  Receipt Date: 20070306
  Transmission Date: 20070707
  Serious: Yes (Hospitalization)
  Sender: FDA-Public Use
  Company Number: US-MERCK-0608USA05746

PATIENT
  Age: 47 Year
  Sex: Female

DRUGS (7)
  1. FOSAMAX [Suspect]
     Indication: OSTEOPENIA
     Route: 048
     Dates: start: 20011110, end: 20031101
  2. FOSAMAX [Suspect]
     Indication: OSTEOPOROSIS
     Route: 048
     Dates: start: 20011110, end: 20031101
  3. ACTONEL [Concomitant]
     Route: 065
     Dates: start: 20031101, end: 20050701
  4. [THERAPY UNSPECIFIED] [Concomitant]
     Indication: HYPERTENSION
     Route: 065
     Dates: start: 19950101
  5. PAXIL [Concomitant]
     Route: 065
  6. HORMONES (UNSPECIFIED) [Concomitant]
     Route: 065
  7. CALTRATE PLUS [Concomitant]
     Route: 065

REACTIONS (12)
  - BACK PAIN [None]
  - BONE DENSITY DECREASED [None]
  - BONE MARROW DISORDER [None]
  - FALL [None]
  - GASTRIC HAEMORRHAGE [None]
  - GASTRITIS [None]
  - HYPERLIPIDAEMIA [None]
  - ORTHOSTATIC HYPOTENSION [None]
  - OSTEONECROSIS [None]
  - PANCYTOPENIA [None]
  - PEPTIC ULCER [None]
  - UPPER LIMB FRACTURE [None]
